FAERS Safety Report 21448508 (Version 2)
Quarter: 2023Q1

REPORT INFORMATION
  Report Type: Other
  Country: AU (occurrence: AU)
  Receive Date: 20221013
  Receipt Date: 20230131
  Transmission Date: 20230418
  Serious: Yes (Other)
  Sender: FDA-Public Use
  Company Number: AU-TOLMAR, INC.-22AU036898

PATIENT
  Sex: Male

DRUGS (1)
  1. ELIGARD [Suspect]
     Active Substance: LEUPROLIDE ACETATE
     Indication: Prostate cancer
     Dosage: 22.5 MILLIGRAM, Q 3 MONTH
     Dates: start: 20220624

REACTIONS (2)
  - Malignant melanoma [Not Recovered/Not Resolved]
  - Renal impairment [Unknown]
